FAERS Safety Report 16954079 (Version 1)
Quarter: 2019Q4

REPORT INFORMATION
  Report Type: Spontaneous
  Country: US (occurrence: US)
  Receive Date: 20191023
  Receipt Date: 20191023
  Transmission Date: 20200122
  Serious: No
  Sender: FDA-Public Use
  Company Number: US-TARO-2019TAR00545

PATIENT
  Age: 69 Year
  Sex: Female
  Weight: 77.1 kg

DRUGS (9)
  1. FLUOCINOLONE ACETONIDE TOPICAL SOLUTION USP 0.01% [Suspect]
     Active Substance: FLUOCINOLONE ACETONIDE
     Indication: DANDRUFF
     Dosage: 5 DROPS, 1X/DAY
     Route: 061
     Dates: start: 201907, end: 20190723
  2. CALCIUM [Concomitant]
     Active Substance: CALCIUM
  3. FLUOCINOLONE ACETONIDE TOPICAL SOLUTION USP 0.01% [Suspect]
     Active Substance: FLUOCINOLONE ACETONIDE
     Indication: PSORIASIS
  4. VITAMIN D [Concomitant]
     Active Substance: VITAMIN D NOS
  5. ANASTROZOLE. [Concomitant]
     Active Substance: ANASTROZOLE
  6. PAROXETINE. [Concomitant]
     Active Substance: PAROXETINE
  7. VITAMIN B [Concomitant]
     Active Substance: VITAMIN B
  8. ARMOUR THYROID [Concomitant]
     Active Substance: THYROID, PORCINE
     Dosage: 60 UNK
  9. ARMOUR THYROID [Concomitant]
     Active Substance: THYROID, PORCINE
     Dosage: 90 MG

REACTIONS (7)
  - Product quality issue [Not Recovered/Not Resolved]
  - Product storage error [Recovered/Resolved]
  - Off label use [Recovered/Resolved]
  - Skin hypertrophy [Not Recovered/Not Resolved]
  - Skin exfoliation [Not Recovered/Not Resolved]
  - Product dose omission [Not Recovered/Not Resolved]
  - Inappropriate schedule of product administration [Recovered/Resolved]

NARRATIVE: CASE EVENT DATE: 201907
